FAERS Safety Report 9354196 (Version 2)
Quarter: 2013Q2

REPORT INFORMATION
  Report Type: Spontaneous
  Country: CZ (occurrence: CZ)
  Receive Date: 20130618
  Receipt Date: 20130624
  Transmission Date: 20140414
  Serious: Yes (Other)
  Sender: FDA-Public Use
  Company Number: CZ-GLAXOSMITHKLINE-B0900494A

PATIENT
  Sex: Female

DRUGS (3)
  1. TROBALT [Suspect]
     Indication: EPILEPSY
     Route: 065
     Dates: start: 20130328
  2. TIMONIL [Concomitant]
     Indication: EPILEPSY
     Dosage: 600MG PER DAY
  3. VIMPAT [Concomitant]
     Indication: EPILEPSY
     Dosage: 150MG PER DAY

REACTIONS (4)
  - Convulsion [Recovered/Resolved]
  - Nausea [Recovered/Resolved]
  - Vomiting [Recovered/Resolved]
  - Dizziness [Recovered/Resolved]
